APPROVED DRUG PRODUCT: LINAGLIPTIN
Active Ingredient: LINAGLIPTIN
Strength: 5MG
Dosage Form/Route: TABLET;ORAL
Application: A208448 | Product #001 | TE Code: AB
Applicant: ZYDUS PHARMACEUTICALS USA INC
Approved: Mar 30, 2023 | RLD: No | RS: No | Type: RX